FAERS Safety Report 8580390-9 (Version None)
Quarter: 2012Q3

REPORT INFORMATION
  Report Type: 
  Country: None (occurrence: None)
  Receive Date: 20120808
  Receipt Date: 20120730
  Transmission Date: 20120928
  Serious: Yes (Hospitalization, Disabling)
  Sender: FDA-Public Use
  Company Number: US-ACTELION-A-NJ2012-64843

PATIENT
  Age: 74 Year
  Sex: Female

DRUGS (3)
  1. VENTAVIS [Suspect]
     Indication: PULMONARY ARTERIAL HYPERTENSION
     Dosage: UNK
     Route: 055
  2. TRACLEER [Suspect]
     Indication: PULMONARY ARTERIAL HYPERTENSION
     Dosage: 125 MG, BID
     Route: 048
  3. COUMADIN [Concomitant]

REACTIONS (10)
  - DECREASED APPETITE [None]
  - OEDEMA PERIPHERAL [None]
  - ABDOMINAL CAVITY DRAINAGE [None]
  - ABDOMINAL PAIN UPPER [None]
  - DYSPNOEA [None]
  - VOMITING [None]
  - NAUSEA [None]
  - FLUID RETENTION [None]
  - ASCITES [None]
  - WEIGHT DECREASED [None]
